FAERS Safety Report 18070950 (Version 1)
Quarter: 2020Q3

REPORT INFORMATION
  Report Type: Spontaneous
  Country: US (occurrence: US)
  Receive Date: 20200724
  Receipt Date: 20200724
  Transmission Date: 20201103
  Serious: No
  Sender: FDA-Public Use
  Company Number: None

PATIENT
  Age: 61 Year
  Sex: Male
  Weight: 84.6 kg

DRUGS (7)
  1. REMDESIVIR. [Suspect]
     Active Substance: REMDESIVIR
     Indication: COVID-19
     Route: 040
  2. DEXAMETHASONE 6 MG [Concomitant]
  3. CLOPIDOGREL [Concomitant]
     Active Substance: CLOPIDOGREL BISULFATE
  4. HEPARIN 500 SQ [Concomitant]
  5. ASPIRIN 81 [Concomitant]
     Active Substance: ASPIRIN
  6. METOPROLOL 12.5 MG [Concomitant]
  7. DOXAZOSIN [Concomitant]
     Active Substance: DOXAZOSIN MESYLATE

REACTIONS (3)
  - Aspartate aminotransferase increased [None]
  - Alanine aminotransferase increased [None]
  - Blood alkaline phosphatase increased [None]

NARRATIVE: CASE EVENT DATE: 20200719
